FAERS Safety Report 22177925 (Version 1)
Quarter: 2023Q2

REPORT INFORMATION
  Report Type: Spontaneous
  Country: IT (occurrence: IT)
  Receive Date: 20230405
  Receipt Date: 20230405
  Transmission Date: 20230722
  Serious: Yes (Death, Other)
  Sender: FDA-Public Use
  Company Number: IT-AMGEN-ITASP2023056027

PATIENT

DRUGS (1)
  1. XGEVA [Suspect]
     Active Substance: DENOSUMAB
     Indication: Metastases to bone
     Dosage: UNK
     Route: 065

REACTIONS (6)
  - Death [Fatal]
  - Spinal cord compression [Unknown]
  - Treatment failure [Unknown]
  - Fracture [Unknown]
  - Hypercalcaemia [Unknown]
  - Bone pain [Unknown]
